FAERS Safety Report 9033876 (Version 1)
Quarter: 2013Q1

REPORT INFORMATION
  Report Type: Spontaneous
  Country: US (occurrence: US)
  Receive Date: 20130128
  Receipt Date: 20130128
  Transmission Date: 20140127
  Serious: Yes (Hospitalization, Other)
  Sender: FDA-Public Use
  Company Number: US-AMGEN-USASP2012069474

PATIENT
  Age: 38 Year
  Sex: Male

DRUGS (1)
  1. ENBREL [Suspect]
     Indication: PSORIASIS
     Dosage: 50 MG, 2 TIMES/WK
     Dates: start: 201007

REACTIONS (8)
  - Muscle spasms [Recovered/Resolved]
  - Synovial cyst [Recovered/Resolved]
  - Meniscus removal [Recovered/Resolved]
  - Foreign body [Recovered/Resolved]
  - Incision site haematoma [Recovered/Resolved]
  - Gait disturbance [Unknown]
  - Scar [Not Recovered/Not Resolved]
  - Psoriasis [Not Recovered/Not Resolved]
